FAERS Safety Report 24312142 (Version 2)
Quarter: 2024Q3

REPORT INFORMATION
  Report Type: Spontaneous
  Country: GB (occurrence: GB)
  Receive Date: 20240912
  Receipt Date: 20240919
  Transmission Date: 20241016
  Serious: Yes (Other)
  Sender: ALMUS
  Company Number: None

PATIENT
  Age: 77 Year
  Sex: Male
  Weight: 72 kg

DRUGS (2)
  1. TIRBANIBULIN [Suspect]
     Active Substance: TIRBANIBULIN
     Indication: Adverse drug reaction
     Dates: start: 20240823
  2. Lansaprazole [Concomitant]
     Indication: Gastrooesophageal reflux disease
     Route: 050
     Dates: start: 19980210

REACTIONS (3)
  - Disorientation [Recovered/Resolved]
  - Brain fog [Unknown]
  - Diplopia [Unknown]

NARRATIVE: CASE EVENT DATE: 20240824
